FAERS Safety Report 8513672-7 (Version None)
Quarter: 2012Q3

REPORT INFORMATION
  Report Type: 
  Country: None (occurrence: None)
  Receive Date: 20120717
  Receipt Date: 20120709
  Transmission Date: 20120928
  Serious: Yes (Other)
  Sender: FDA-Public Use
  Company Number: JP-ELI_LILLY_AND_COMPANY-JP201207002542

PATIENT
  Age: 55 Year
  Sex: Female

DRUGS (4)
  1. GEMZAR [Suspect]
     Indication: PANCREATIC CARCINOMA
     Dosage: 1000 MG/M2, UNK
     Route: 042
  2. TS 1 [Concomitant]
     Indication: PANCREATIC CARCINOMA
     Dosage: 60 MG/M2, UNK
     Route: 048
  3. TS 1 [Concomitant]
     Dosage: 60 MG/M2, UNK
     Route: 048
  4. GEMZAR [Suspect]
     Dosage: 1000 MG/M2, UNK
     Route: 042

REACTIONS (2)
  - PANCREATICODUODENECTOMY [None]
  - NEUTROPHIL COUNT DECREASED [None]
